FAERS Safety Report 7055812-5 (Version None)
Quarter: 2010Q4

REPORT INFORMATION
  Report Type: 
  Country: None (occurrence: None)
  Receive Date: 20101021
  Receipt Date: 20101013
  Transmission Date: 20110411
  Serious: No
  Sender: FDA-Public Use
  Company Number: US-B.I. PHARMACEUTICALS,INC./RIDGEFIELD-2010-BP-09612BP

PATIENT
  Sex: Male

DRUGS (8)
  1. SPIRIVA [Suspect]
     Indication: CHRONIC OBSTRUCTIVE PULMONARY DISEASE
     Dosage: 18 MCG
     Route: 055
     Dates: start: 20100701, end: 20101012
  2. LITHIUM [Concomitant]
     Indication: BIPOLAR DISORDER
     Dosage: 1200 MG
     Route: 048
     Dates: start: 19770101
  3. SEROQUEL [Concomitant]
     Indication: BIPOLAR DISORDER
     Dosage: 200 MG
     Route: 048
     Dates: start: 20000101
  4. NORVASC [Concomitant]
     Indication: HYPERTENSION
     Dosage: 5 MG
     Route: 048
  5. MICARDIS [Concomitant]
     Indication: HYPERTENSION
     Dosage: 100 MG
     Route: 048
  6. PROAIR HFA [Concomitant]
     Indication: CHRONIC OBSTRUCTIVE PULMONARY DISEASE
     Route: 055
  7. AMLODIPINE [Concomitant]
  8. LOSARTAN [Concomitant]

REACTIONS (4)
  - DRUG INEFFECTIVE [None]
  - DRY EYE [None]
  - DYSPNOEA [None]
  - EYE IRRITATION [None]
